FAERS Safety Report 17699168 (Version 1)
Quarter: 2020Q2

REPORT INFORMATION
  Report Type: Spontaneous
  Country: US (occurrence: US)
  Receive Date: 20200422
  Receipt Date: 20200422
  Transmission Date: 20200714
  Serious: Yes (Death)
  Sender: FDA-Public Use
  Company Number: None

PATIENT
  Age: 69 Year
  Sex: Male
  Weight: 107 kg

DRUGS (1)
  1. OXYCODONE [Suspect]
     Active Substance: OXYCODONE
     Indication: PAIN
     Dosage: ?          OTHER DOSE:1 TAB;?
     Route: 048

REACTIONS (5)
  - Urinary incontinence [None]
  - Intentional overdose [None]
  - Completed suicide [None]
  - Pupil fixed [None]
  - Anal incontinence [None]

NARRATIVE: CASE EVENT DATE: 20191115
